FAERS Safety Report 7332526-5 (Version None)
Quarter: 2011Q1

REPORT INFORMATION
  Report Type: 
  Country: None (occurrence: None)
  Receive Date: 20110222
  Receipt Date: 20110207
  Transmission Date: 20110831
  Serious: Yes (Life-Threatening, Hospitalization)
  Sender: FDA-Public Use
  Company Number: 2011AT000059

PATIENT
  Age: 40 Year
  Sex: Male

DRUGS (1)
  1. ISOKET (ISOSORBIDE DINITRATE) [Suspect]
     Indication: ACUTE MYOCARDIAL INFARCTION
     Dosage: 1X;PO
     Route: 048
     Dates: start: 20100701, end: 20100701

REACTIONS (2)
  - CIRCULATORY COLLAPSE [None]
  - ACUTE MYOCARDIAL INFARCTION [None]
